FAERS Safety Report 24032404 (Version 1)
Quarter: 2024Q3

REPORT INFORMATION
  Report Type: Spontaneous
  Country: GB (occurrence: GB)
  Receive Date: 20240701
  Receipt Date: 20240701
  Transmission Date: 20241016
  Serious: Yes (Other)
  Sender: ESPERION THERAPEUTICS
  Company Number: None

PATIENT
  Age: 77 Year
  Sex: Male
  Weight: 80 kg

DRUGS (6)
  1. BEMPEDOIC ACID\EZETIMIBE [Suspect]
     Active Substance: BEMPEDOIC ACID\EZETIMIBE
     Indication: Product used for unknown indication
     Dosage: 1 DF, QD (ONE TO BE TAKEN ONCE DAILY)
     Route: 065
     Dates: start: 20240522
  2. DOXAZOSIN [Concomitant]
     Active Substance: DOXAZOSIN MESYLATE
     Indication: Essential hypertension
     Dosage: 1 DF, QD (ONE TO BE TAKEN EACH DAY)
     Route: 065
     Dates: start: 20240417
  3. EZETIMIBE [Concomitant]
     Active Substance: EZETIMIBE
     Indication: Essential hypertension
     Dosage: 1 DF, QD (ONE TO BE TAKEN EACH DAY. FOR CHOLESTEROL. BLOOD TESTS DUE IN JULY 2024)
     Route: 065
     Dates: start: 20240417
  4. EZETIMIBE [Concomitant]
     Active Substance: EZETIMIBE
     Indication: Hypercholesterolaemia
  5. BECLOMETHASONE DIPROPIONATE [Concomitant]
     Active Substance: BECLOMETHASONE DIPROPIONATE
     Indication: Acute sinusitis
     Dosage: 4 DF, BID (TWO SPRAYS TO BE USED IN EACH NOSTRIL TWICE A DAY)
     Route: 065
     Dates: start: 20240514
  6. SPIKEVAX XBB.1.5 [Concomitant]
     Indication: Product used for unknown indication
     Dosage: 0.5 ML
     Route: 030
     Dates: start: 20240618

REACTIONS (2)
  - Pollakiuria [Unknown]
  - Dyspnoea [Unknown]
